FAERS Safety Report 12039097 (Version 1)
Quarter: 2016Q1

REPORT INFORMATION
  Report Type: Spontaneous
  Country: US (occurrence: None)
  Receive Date: 20160205
  Receipt Date: 20160205
  Transmission Date: 20160526
  Serious: Yes (Life-Threatening, Hospitalization)
  Sender: FDA-Public Use
  Company Number: None

PATIENT
  Age: 71 Year
  Sex: Male
  Weight: 104.4 kg

DRUGS (2)
  1. MORPHINE [Suspect]
     Active Substance: MORPHINE
     Indication: PAIN
     Route: 048
     Dates: start: 20151230, end: 20151231
  2. MORPHINE [Suspect]
     Active Substance: MORPHINE
     Indication: PAIN
     Route: 048
     Dates: start: 20151226, end: 20151231

REACTIONS (5)
  - Hypoventilation [None]
  - Asthenia [None]
  - Hypoxia [None]
  - Respiratory depression [None]
  - Drug withdrawal syndrome [None]

NARRATIVE: CASE EVENT DATE: 20151231
